FAERS Safety Report 23341651 (Version 1)
Quarter: 2023Q4

REPORT INFORMATION
  Report Type: Spontaneous
  Country: CH (occurrence: CH)
  Receive Date: 20231227
  Receipt Date: 20231227
  Transmission Date: 20240109
  Serious: Yes (Other)
  Sender: FDA-Public Use
  Company Number: CH-SM-2023-18499

PATIENT
  Age: 52 Year
  Sex: Male
  Weight: 107 kg

DRUGS (21)
  1. CLONAZEPAM [Interacting]
     Active Substance: CLONAZEPAM
     Dosage: 0.5 MG 2-0-0?DAILY DOSE: 1 MILLIGRAM
  2. CLONAZEPAM [Interacting]
     Active Substance: CLONAZEPAM
     Dosage: 0-0-1
  3. VALIUM [Interacting]
     Active Substance: DIAZEPAM
     Dosage: 5MG 1-0-0-2
  4. VALIUM [Interacting]
     Active Substance: DIAZEPAM
     Dosage: 5MG 1-0-0-2
  5. MORPHINE SULFATE [Interacting]
     Active Substance: MORPHINE SULFATE
     Dosage: DAILY DOSE: 400 MILLIGRAM
  6. TORSEMIDE [Suspect]
     Active Substance: TORSEMIDE
     Dosage: DAILY DOSE: 10 MILLIGRAM
  7. SODIUM PICOSULFATE [Suspect]
     Active Substance: SODIUM PICOSULFATE
     Dosage: TROPFEN 20-0-20?DAILY DOSE: 40 DROP
  8. ASPIRIN [Concomitant]
     Active Substance: ASPIRIN
     Dosage: DAILY DOSE: 100 MILLIGRAM
  9. ATORVASTATIN CALCIUM\EZETIMIBE [Concomitant]
     Active Substance: ATORVASTATIN CALCIUM\EZETIMIBE
  10. ATORVASTATIN CALCIUM\EZETIMIBE [Concomitant]
     Active Substance: ATORVASTATIN CALCIUM\EZETIMIBE
  11. ATORVASTATIN CALCIUM\EZETIMIBE [Concomitant]
     Active Substance: ATORVASTATIN CALCIUM\EZETIMIBE
  12. METOPROLOL SUCCINATE [Concomitant]
     Active Substance: METOPROLOL SUCCINATE
     Dosage: 25 MG 1-0-1?DAILY DOSE: 50 MILLIGRAM
  13. DULOXETINE [Concomitant]
     Active Substance: DULOXETINE
     Dosage: DAILY DOSE: 180 MILLIGRAM
  14. LATUDA [Concomitant]
     Active Substance: LURASIDONE HYDROCHLORIDE
     Dosage: 0.5-0-0?DAILY DOSE: 20 MILLIGRAM
  15. MIRTAZAPINE [Concomitant]
     Active Substance: MIRTAZAPINE
     Dosage: MIRTAZAPIN 30 MG 0-0-0-1?DAILY DOSE: 30 MILLIGRAM
  16. DAPAGLIFLOZIN [Concomitant]
     Active Substance: DAPAGLIFLOZIN
     Dosage: FORXIGA 10 MG 1-0-0?DAILY DOSE: 10 MILLIGRAM
  17. DUPHALAC [Concomitant]
     Active Substance: LACTULOSE
     Dosage: DAILY DOSE: 60 MILLIGRAM
  18. MOVICOL [Concomitant]
     Active Substance: POLYETHYLENE GLYCOL 3350\POTASSIUM CHLORIDE\SODIUM BICARBONATE\SODIUM CHLORIDE
  19. VITAMIN D3 [Concomitant]
     Active Substance: CHOLECALCIFEROL
     Dosage: = 2ML
  20. ANORO ELLIPTA [Concomitant]
     Active Substance: UMECLIDINIUM BROMIDE\VILANTEROL TRIFENATATE
  21. ANORO ELLIPTA [Concomitant]
     Active Substance: UMECLIDINIUM BROMIDE\VILANTEROL TRIFENATATE

REACTIONS (3)
  - Respiratory depression [Not Recovered/Not Resolved]
  - Hypokalaemia [Not Recovered/Not Resolved]
  - Drug interaction [Not Recovered/Not Resolved]

NARRATIVE: CASE EVENT DATE: 20231205
